FAERS Safety Report 22536859 (Version 1)
Quarter: 2023Q2

REPORT INFORMATION
  Report Type: Spontaneous
  Country: US (occurrence: US)
  Receive Date: 20230608
  Receipt Date: 20230608
  Transmission Date: 20230721
  Serious: No
  Sender: FDA-Public Use
  Company Number: US-MYLANLABS-2023M1054585

PATIENT
  Age: 86 Year
  Sex: Female

DRUGS (2)
  1. YUPELRI [Suspect]
     Active Substance: REVEFENACIN
     Indication: Asthma
     Dosage: 1 DOSE A DAY EVERY 24 HOURS
     Route: 055
  2. YUPELRI [Suspect]
     Active Substance: REVEFENACIN
     Indication: Respiration abnormal

REACTIONS (1)
  - Blood pressure increased [Recovered/Resolved]
